FAERS Safety Report 24756786 (Version 2)
Quarter: 2024Q4

REPORT INFORMATION
  Report Type: Spontaneous
  Country: AT (occurrence: AT)
  Receive Date: 20241220
  Receipt Date: 20241231
  Transmission Date: 20250114
  Serious: No
  Sender: ASTELLAS
  Company Number: AT-ASTELLAS-2024-AER-024032

PATIENT
  Age: 80 Year
  Sex: Male

DRUGS (2)
  1. VESICARE [Suspect]
     Active Substance: SOLIFENACIN SUCCINATE
     Indication: Pollakiuria
     Dosage: 1 TABLET PER DAY
     Route: 048
     Dates: start: 202410
  2. VESICARE [Suspect]
     Active Substance: SOLIFENACIN SUCCINATE
     Dosage: 2/3(TWO THIRD) OF THE TABLET EVERY DAY
     Route: 048
     Dates: start: 202412

REACTIONS (3)
  - Abdominal pain upper [Recovered/Resolved]
  - Dry mouth [Unknown]
  - Wrong technique in product usage process [Unknown]

NARRATIVE: CASE EVENT DATE: 20241101
